FAERS Safety Report 15803246 (Version 1)
Quarter: 2018Q4

REPORT INFORMATION
  Report Type: Spontaneous
  Country: US (occurrence: US)
  Receive Date: 20181213
  Receipt Date: 20181213
  Transmission Date: 20190205
  Serious: Yes (Life-Threatening, Hospitalization, Disabling, Other)
  Sender: FDA-Public Use
  Company Number: None

PATIENT
  Age: 42 Year
  Sex: Male
  Weight: 86.18 kg

DRUGS (1)
  1. CIPRO [Suspect]
     Active Substance: CIPROFLOXACIN HYDROCHLORIDE
     Indication: URINARY TRACT INFECTION
     Dosage: ?          QUANTITY:14 PILLS;?
     Dates: start: 20000617, end: 20011222

REACTIONS (12)
  - Heart rate irregular [None]
  - Musculoskeletal disorder [None]
  - Cerebrovascular accident [None]
  - Brain injury [None]
  - Neuritis [None]
  - Arthritis [None]
  - Neuropathy peripheral [None]
  - Mental disorder [None]
  - Syncope [None]
  - Myocardial infarction [None]
  - Asthenia [None]
  - Unevaluable event [None]

NARRATIVE: CASE EVENT DATE: 20000617
